FAERS Safety Report 8295378-5 (Version None)
Quarter: 2012Q2

REPORT INFORMATION
  Report Type: 
  Country: None (occurrence: None)
  Receive Date: 20120418
  Receipt Date: 20120405
  Transmission Date: 20120825
  Serious: Yes (Hospitalization)
  Sender: FDA-Public Use
  Company Number: JP-ROCHE-1059709

PATIENT
  Sex: Male
  Weight: 64 kg

DRUGS (10)
  1. XELODA [Suspect]
     Indication: LARGE INTESTINE CARCINOMA
     Route: 048
     Dates: start: 20110929, end: 20120115
  2. DIOVAN [Concomitant]
     Route: 048
     Dates: start: 20111222
  3. EMEND [Concomitant]
     Route: 048
     Dates: start: 20110929, end: 20111222
  4. DAI-KENCHU-TO [Concomitant]
     Route: 048
     Dates: start: 20110916, end: 20111110
  5. PYDOXAL [Concomitant]
     Route: 048
     Dates: start: 20110929
  6. ENALAPRIL MALEATE [Concomitant]
     Route: 048
     Dates: start: 20111222
  7. PRIMPERAN (JAPAN) [Concomitant]
     Route: 048
     Dates: start: 20110929, end: 20111122
  8. AVASTIN [Suspect]
     Indication: RECTAL CANCER METASTATIC
     Route: 041
     Dates: start: 20110929, end: 20111222
  9. MIYA BM [Concomitant]
     Route: 048
     Dates: start: 20110916, end: 20111110
  10. PROTECADIN [Concomitant]
     Route: 048
     Dates: start: 20110929

REACTIONS (2)
  - RECTAL PERFORATION [None]
  - PALMAR-PLANTAR ERYTHRODYSAESTHESIA SYNDROME [None]
